FAERS Safety Report 12455100 (Version 2)
Quarter: 2016Q2

REPORT INFORMATION
  Report Type: Spontaneous
  Country: DE (occurrence: DE)
  Receive Date: 20160610
  Receipt Date: 20160610
  Transmission Date: 20160815
  Serious: Yes (Other)
  Sender: FDA-Public Use
  Company Number: DE-ACTAVIS-2016-11828

PATIENT
  Age: 69 Year
  Sex: Male

DRUGS (5)
  1. RITUXIMAB [Suspect]
     Active Substance: RITUXIMAB
     Indication: NON-HODGKIN^S LYMPHOMA STAGE IV
     Dosage: UNK UNK, CYCLICAL
     Route: 065
  2. VINCRISTINE (UNKNOWN) [Suspect]
     Active Substance: VINCRISTINE
     Indication: NON-HODGKIN^S LYMPHOMA STAGE IV
     Dosage: UNK UNK, CYCLICAL
     Route: 065
  3. DOXORUBICIN (UNKNOWN) [Suspect]
     Active Substance: DOXORUBICIN
     Indication: NON-HODGKIN^S LYMPHOMA STAGE IV
     Dosage: UNK UNK, CYCLICAL
     Route: 065
  4. PREDNISOLONE (UNKNOWN) [Suspect]
     Active Substance: PREDNISOLONE
     Indication: NON-HODGKIN^S LYMPHOMA STAGE IV
     Dosage: UNK UNK, CYCLICAL
     Route: 065
  5. CYCLOPHOSPHAMIDE. [Suspect]
     Active Substance: CYCLOPHOSPHAMIDE
     Indication: NON-HODGKIN^S LYMPHOMA STAGE IV
     Dosage: UNK UNK, CYCLICAL
     Route: 065

REACTIONS (3)
  - Oral herpes [Unknown]
  - Device related infection [Unknown]
  - Acute kidney injury [Unknown]
